FAERS Safety Report 8592354-X (Version None)
Quarter: 2012Q3

REPORT INFORMATION
  Report Type: 
  Country: None (occurrence: None)
  Receive Date: 20120814
  Receipt Date: 20120724
  Transmission Date: 20120928
  Serious: Yes (Other)
  Sender: FDA-Public Use
  Company Number: JP-009507513-2012SP032677

PATIENT

DRUGS (20)
  1. PEG-INTRON [Suspect]
     Indication: HEPATITIS C
     Dosage: 1.5G/KG/WEEK
     Route: 058
     Dates: start: 20120403
  2. AMLODIPINE [Concomitant]
     Route: 048
  3. SEFTAC [Concomitant]
     Indication: GASTRIC ULCER
     Dosage: 200 MG, QD
     Route: 048
  4. CLARITIN REDITABS [Concomitant]
     Indication: PROPHYLAXIS
     Dosage: 10 MG, QD
     Route: 048
  5. CLARITIN REDITABS [Concomitant]
     Route: 048
  6. RABEPRAZOLE SODIUM [Concomitant]
     Indication: GASTRIC ULCER
     Dosage: FORMULATION: POR
     Route: 048
  7. ANTIVIRAL (UNSPECIFIED) [Suspect]
     Indication: HEPATITIS C
     Dosage: 1500 MG, QD
     Route: 048
     Dates: start: 20120403
  8. RABEPRAZOLE SODIUM [Concomitant]
     Route: 048
  9. REBETOL [Suspect]
     Dosage: 400 MG, QD
     Route: 048
     Dates: start: 20120427
  10. REBETOL [Suspect]
     Route: 048
  11. AMLODIPINE [Concomitant]
     Indication: HYPERTENSION
     Dosage: FORMULATION: POR
     Route: 048
  12. SEFTAC [Concomitant]
     Route: 048
  13. MAGLAX (MAGNESIUM OXIDE) [Concomitant]
     Indication: CONSTIPATION
     Route: 048
  14. TAMSULOSIN HYDROCHLORIDE [Concomitant]
     Indication: BENIGN PROSTATIC HYPERPLASIA
     Route: 048
  15. REBETOL [Suspect]
     Indication: HEPATITIS C
     Dosage: 600 MG, QD
     Route: 048
     Dates: start: 20120403, end: 20120426
  16. TELAVIC [Suspect]
     Indication: HEPATITIS C
     Route: 048
     Dates: start: 20120403
  17. EPADEL [Concomitant]
     Indication: HYPERLIPIDAEMIA
     Dosage: FORMULATION: POR
     Route: 048
  18. SODIUM FERROUS CITRATE [Concomitant]
     Indication: IRON DEFICIENCY ANAEMIA
     Dosage: FORMULATION: POR
     Route: 048
  19. EPADEL S [Concomitant]
     Indication: HYPERLIPIDAEMIA
     Route: 048
  20. FEROTYM [Concomitant]
     Indication: IRON DEFICIENCY ANAEMIA
     Dosage: 100 MG, ONCE
     Route: 048

REACTIONS (1)
  - ANAEMIA [None]
